FAERS Safety Report 6606751-2 (Version None)
Quarter: 2010Q1

REPORT INFORMATION
  Report Type: 
  Country: None (occurrence: None)
  Receive Date: 20100226
  Receipt Date: 20100222
  Transmission Date: 20100710
  Serious: Yes (Other)
  Sender: FDA-Public Use
  Company Number: CO-GENENTECH-298545

PATIENT
  Sex: Female

DRUGS (2)
  1. MABTHERA [Suspect]
     Indication: NON-HODGKIN'S LYMPHOMA
     Dosage: 600 G, 1/MONTH
     Route: 042
     Dates: start: 20090601
  2. PROPRANOLOL [Concomitant]
     Indication: HYPERTENSION
     Dosage: 40 MG, QAM
     Route: 048

REACTIONS (1)
  - CARDIAC DISORDER [None]
